FAERS Safety Report 5722578-8 (Version None)
Quarter: 2008Q2

REPORT INFORMATION
  Report Type: 
  Country: None (occurrence: None)
  Receive Date: 20080429
  Receipt Date: 20071008
  Transmission Date: 20081010
  Serious: No
  Sender: FDA-Public Use
  Company Number: US-ASTRAZENECA-2007UW23400

PATIENT
  Age: 40 Year
  Sex: Male

DRUGS (1)
  1. NEXIUM [Suspect]
     Dosage: SAMPLES
     Route: 048
     Dates: start: 20071001

REACTIONS (2)
  - BURNING SENSATION [None]
  - DYSPEPSIA [None]
